FAERS Safety Report 17893626 (Version 1)
Quarter: 2020Q2

REPORT INFORMATION
  Report Type: Spontaneous
  Country: FR (occurrence: FR)
  Receive Date: 20200615
  Receipt Date: 20200615
  Transmission Date: 20200714
  Serious: Yes (Hospitalization)
  Sender: FDA-Public Use
  Company Number: FR-CADILA HEALTHCARE LIMITED-FR-ZYDUS-036378

PATIENT

DRUGS (24)
  1. CODOLIPRANE [Suspect]
     Active Substance: ACETAMINOPHEN\CODEINE PHOSPHATE
     Indication: PRODUCT USED FOR UNKNOWN INDICATION
     Route: 048
     Dates: start: 20070126, end: 20070201
  2. TEMESTA [LORAZEPAM] [Suspect]
     Active Substance: LORAZEPAM
     Indication: PRODUCT USED FOR UNKNOWN INDICATION
     Dosage: 1 MILLIGRAM,(INTERVAL :1 DAYS)
     Route: 048
     Dates: end: 20070201
  3. NOVONORM [Concomitant]
     Active Substance: REPAGLINIDE
     Dosage: 1 MILLIGRAM,(INTERVAL :1 DAYS)
     Route: 048
  4. OMEPRAZOLE. [Suspect]
     Active Substance: OMEPRAZOLE
     Indication: PRODUCT USED FOR UNKNOWN INDICATION
     Dosage: 20 MILLIGRAM,(INTERVAL :1 DAYS)
     Route: 048
  5. NAFTILUX [Concomitant]
     Active Substance: NAFRONYL OXALATE
     Dosage: 400 MILLIGRAM,(INTERVAL :1 DAYS)
     Route: 048
     Dates: end: 20070201
  6. LOXEN [Concomitant]
     Dosage: 50 MILLIGRAM,(INTERVAL :1 DAYS)
     Route: 048
     Dates: end: 20070201
  7. FORTZAAR [Suspect]
     Active Substance: HYDROCHLOROTHIAZIDE\LOSARTAN POTASSIUM
     Indication: ESSENTIAL HYPERTENSION
     Dosage: 1 DOSAGE FORM,(INTERVAL :1 DAYS)
     Route: 048
  8. MOXONIDINE [Concomitant]
     Active Substance: MOXONIDINE
     Dosage: .2 MILLIGRAM,(INTERVAL :1 DAYS)
     Route: 048
     Dates: end: 20070201
  9. HUMALOG [Concomitant]
     Active Substance: INSULIN LISPRO
     Dosage: 16 INTERNATIONAL UNIT,DAILY DOSE 16 IU,(INTERVAL :1 DAYS)
     Route: 058
  10. NEURONTIN [Suspect]
     Active Substance: GABAPENTIN
     Indication: PRODUCT USED FOR UNKNOWN INDICATION
     Dosage: 600 MILLIGRAM
     Route: 048
  11. HUMALOG [Concomitant]
     Active Substance: INSULIN LISPRO
     Dosage: 16,DAILY DOSE 16 IU,(INTERVAL :1 DAYS)
     Route: 058
  12. ASPEGIC [Concomitant]
     Dosage: 250 MILLIGRAM,(INTERVAL :1 DAYS)
     Route: 048
  13. LOXEN [Concomitant]
     Dosage: 50 MILLIGRAM,(INTERVAL :1 DAYS)
     Route: 048
     Dates: end: 20070201
  14. MOXONIDINE [Concomitant]
     Active Substance: MOXONIDINE
     Dosage: .2 MILLIGRAM,(INTERVAL :1 DAYS)
     Route: 048
     Dates: end: 20070201
  15. UMULINE [Concomitant]
     Active Substance: INSULIN HUMAN
     Dosage: 36 INTERNATIONAL UNIT,(INTERVAL :1 DAYS)
     Route: 058
  16. UMULINE [Concomitant]
     Active Substance: INSULIN HUMAN
     Dosage: 36 INTERNATIONAL UNIT,(INTERVAL :1 DAYS)
     Route: 058
  17. DAFALGAN 500 [Concomitant]
     Dosage: 500 MILLIGRAM,(INTERVAL :1 DAYS)
     Route: 048
  18. MIRTAZAPINE. [Concomitant]
     Active Substance: MIRTAZAPINE
     Route: 048
     Dates: end: 20070201
  19. MIRTAZAPINE. [Concomitant]
     Active Substance: MIRTAZAPINE
     Dosage: ()
     Route: 048
     Dates: end: 20070201
  20. EUPRESSYL [Suspect]
     Active Substance: URAPIDIL
     Indication: ESSENTIAL HYPERTENSION
     Dosage: 90 MILLIGRAM,PROLONGED-RELEASE CAPSULE,(INTERVAL :1 DAYS)
     Route: 048
  21. DAFALGAN [Concomitant]
     Active Substance: ACETAMINOPHEN
     Dosage: 500 MILLIGRAM,(INTERVAL :1 DAYS)
     Route: 048
  22. NAFTILUX [Concomitant]
     Active Substance: NAFRONYL OXALATE
     Dosage: 400 MILLIGRAM,(INTERVAL :1 DAYS)
     Route: 048
     Dates: end: 20070201
  23. NOVONORM [Concomitant]
     Active Substance: REPAGLINIDE
     Dosage: 1 MILLIGRAM,(INTERVAL :1 DAYS)
     Route: 048
  24. ASPEGIC [Concomitant]
     Dosage: 250 MILLIGRAM,(INTERVAL :1 DAYS)
     Route: 048

REACTIONS (2)
  - Confusional state [Recovering/Resolving]
  - Fall [Recovering/Resolving]

NARRATIVE: CASE EVENT DATE: 20070201
